FAERS Safety Report 12276828 (Version 5)
Quarter: 2016Q3

REPORT INFORMATION
  Report Type: Spontaneous
  Country: US (occurrence: US)
  Receive Date: 20160418
  Receipt Date: 20160815
  Transmission Date: 20161109
  Serious: Yes (Hospitalization, Other)
  Sender: FDA-Public Use
  Company Number: US-PFIZER INC-2016136939

PATIENT
  Age: 81 Year
  Sex: Female

DRUGS (19)
  1. CALCIUM CITRATE [Suspect]
     Active Substance: CALCIUM CITRATE
     Indication: BONE DISORDER
     Dosage: 250 MG, 2X/DAY
  2. AMLODIPINE BESILATE [Suspect]
     Active Substance: AMLODIPINE BESYLATE
     Dosage: 15 UNK, UNK
  3. FOSAMAX [Suspect]
     Active Substance: ALENDRONATE SODIUM
     Indication: BONE DENSITY DECREASED
     Dosage: 70 MG, WEEKLY
     Dates: start: 201506, end: 20160106
  4. CALCIUM CITRATE [Suspect]
     Active Substance: CALCIUM CITRATE
     Dosage: 250 MG, 1X/DAY
  5. ZOMAX [Suspect]
     Active Substance: ZOMEPIRAC SODIUM
     Dosage: UNK
  6. VITAMIN D3 [Concomitant]
     Active Substance: CHOLECALCIFEROL
     Dosage: 400 IU, UNK
  7. AMLODIPINE BESILATE [Suspect]
     Active Substance: AMLODIPINE BESYLATE
     Dosage: 10 MG, UNK
  8. CALCIUM [Concomitant]
     Active Substance: CALCIUM
     Dosage: 300 MG, UNK
  9. CENTRUM SILVER WOMEN^S 50+ [Suspect]
     Active Substance: MINERALS\VITAMINS
     Indication: BONE DENSITY DECREASED
     Dosage: 1 DF, 1X/DAY AT LUNCH
     Dates: start: 2005
  10. KLOR-CON [Suspect]
     Active Substance: POTASSIUM CHLORIDE
     Dosage: UNK
  11. TYLENOL [Concomitant]
     Active Substance: ACETAMINOPHEN
     Dosage: UNK, AS NEEDED
  12. SITROMIN [Concomitant]
     Dosage: 1 DF, 1X/DAY
  13. PREVALITE [Concomitant]
     Active Substance: CHOLESTYRAMINE
     Dosage: UNK
  14. DRAMAMINE [Concomitant]
     Active Substance: DIMENHYDRINATE
     Dosage: UNK, AS NEEDED
  15. AMLODIPINE BESILATE [Suspect]
     Active Substance: AMLODIPINE BESYLATE
     Dosage: 0.5 UNK, UNK
  16. CALCIUM CARBONATE. [Concomitant]
     Active Substance: CALCIUM CARBONATE
     Dosage: UNK
  17. CENTRUM SILVER WOMEN^S 50+ [Suspect]
     Active Substance: MINERALS\VITAMINS
     Dosage: UNK
  18. LETROZOLE. [Suspect]
     Active Substance: LETROZOLE
     Indication: PROPHYLAXIS
     Dosage: 2.5 MG, DAILY
  19. LETROZOLE. [Suspect]
     Active Substance: LETROZOLE
     Dosage: 630 MG, UNK

REACTIONS (31)
  - Fall [Unknown]
  - Swelling face [Recovered/Resolved]
  - Blister [Unknown]
  - Gait disturbance [Unknown]
  - Asthenia [Unknown]
  - Osteoporosis [Unknown]
  - Swelling [Unknown]
  - Rash [Unknown]
  - Pathological fracture [Unknown]
  - Back pain [Unknown]
  - Motion sickness [Unknown]
  - Eyelid oedema [Unknown]
  - Weight decreased [Unknown]
  - Dysphonia [Unknown]
  - Arthralgia [Unknown]
  - Insomnia [Unknown]
  - Dizziness [Not Recovered/Not Resolved]
  - Vision blurred [Not Recovered/Not Resolved]
  - Hypersensitivity [Unknown]
  - Deafness [Not Recovered/Not Resolved]
  - Benign breast neoplasm [Unknown]
  - Blood cholesterol increased [Recovering/Resolving]
  - Balance disorder [Not Recovered/Not Resolved]
  - Spinal compression fracture [Unknown]
  - Pharyngeal disorder [Unknown]
  - Paraesthesia [Unknown]
  - Aortic valve incompetence [Recovered/Resolved]
  - Immune system disorder [Unknown]
  - Sciatica [Unknown]
  - Hypoacusis [Unknown]
  - Eye swelling [Unknown]

NARRATIVE: CASE EVENT DATE: 201502
